FAERS Safety Report 6380498 (Version 2)
Quarter: 2016Q4

REPORT INFORMATION
  Report Type: Spontaneous
  Country: JP (occurrence: JP)
  Receive Date: 20070810
  Receipt Date: 20161219
  Transmission Date: 20170207
  Serious: Yes (Life-Threatening, Hospitalization, Other)
  Sender: FDA-Public Use
  Company Number: JP-BAXTER-2006BH014211

PATIENT
  Age: 52 Year
  Sex: Male
  Weight: 58 kg

DRUGS (16)
  1. PREDNISOLONE. [Concomitant]
     Active Substance: PREDNISOLONE
     Dosage: 10 MG, UNK
     Route: 065
     Dates: start: 20070114, end: 20070114
  2. PREDNISOLONE. [Concomitant]
     Active Substance: PREDNISOLONE
     Dosage: 20 MG, UNK
     Route: 065
     Dates: start: 20060902, end: 20060902
  3. PREDNISOLONE. [Concomitant]
     Active Substance: PREDNISOLONE
     Dosage: 15 MG, UNK
     Route: 065
     Dates: start: 20061118, end: 20061118
  4. FEIBA VH [Suspect]
     Active Substance: ANTI-INHIBITOR COAGULANT COMPLEX
     Indication: GASTROINTESTINAL HAEMORRHAGE
     Dosage: 3000IU (INTERNATIONAL UNIT)2X A DAY
     Route: 042
     Dates: start: 20061013, end: 20061018
  5. CICLOSPORIN A [Suspect]
     Active Substance: CYCLOSPORINE
     Dosage: 200 MG, UNK
     Route: 065
     Dates: start: 20060922, end: 20060922
  6. CICLOSPORIN A [Suspect]
     Active Substance: CYCLOSPORINE
     Indication: PRODUCT USED FOR UNKNOWN INDICATION
     Dosage: 300 MG, UNK
     Route: 065
  7. CICLOSPORIN A [Suspect]
     Active Substance: CYCLOSPORINE
     Dosage: 100 MG, UNK
     Route: 065
     Dates: start: 20061109, end: 20061109
  8. CICLOSPORIN A [Suspect]
     Active Substance: CYCLOSPORINE
     Dosage: 150 MG, UNK
     Route: 065
     Dates: start: 20061118, end: 20061118
  9. PREDNISOLONE. [Concomitant]
     Active Substance: PREDNISOLONE
     Dosage: 5 MG, UNK
     Route: 065
     Dates: start: 20070208, end: 20070208
  10. CICLOSPORIN A [Suspect]
     Active Substance: CYCLOSPORINE
     Dosage: 300 MG, UNK
     Route: 065
     Dates: start: 20060816, end: 20060816
  11. PREDNISOLONE. [Concomitant]
     Active Substance: PREDNISOLONE
     Indication: PRODUCT USED FOR UNKNOWN INDICATION
     Dosage: 40 MG, UNK
     Route: 065
     Dates: start: 20060816, end: 20060816
  12. PREDNISOLONE. [Concomitant]
     Active Substance: PREDNISOLONE
     Dosage: 15 MG, UNK
     Route: 065
     Dates: start: 20060922, end: 20060922
  13. NOVOSEVEN [Suspect]
     Active Substance: COAGULATION FACTOR VIIA RECOMBINANT HUMAN
     Indication: HAEMOSTASIS
     Dosage: 4.8MILLIGRAM4X A DAY
     Route: 065
     Dates: start: 20061017, end: 20061017
  14. CICLOSPORIN A [Suspect]
     Active Substance: CYCLOSPORINE
     Dosage: 100 MG, UNK
     Route: 065
     Dates: start: 20070114, end: 20070114
  15. PREDNISOLONE. [Concomitant]
     Active Substance: PREDNISOLONE
     Dosage: 30 MG, UNK
     Route: 065
     Dates: start: 20060828, end: 20060828
  16. PREDNISOLONE. [Concomitant]
     Active Substance: PREDNISOLONE
     Dosage: 10 MG, UNK
     Route: 065
     Dates: start: 20061109, end: 20061109

REACTIONS (2)
  - Haemolytic uraemic syndrome [Recovered/Resolved]
  - Thrombosis [Recovering/Resolving]

NARRATIVE: CASE EVENT DATE: 20061017
